FAERS Safety Report 12881478 (Version 3)
Quarter: 2016Q4

REPORT INFORMATION
  Report Type: Spontaneous
  Country: JP (occurrence: JP)
  Receive Date: 20161025
  Receipt Date: 20161103
  Transmission Date: 20170207
  Serious: Yes (Other)
  Sender: FDA-Public Use
  Company Number: PHJP2016JP030138

PATIENT
  Age: 44 Year
  Sex: Female

DRUGS (2)
  1. IMUSERA [Suspect]
     Active Substance: FINGOLIMOD HYDROCHLORIDE
     Indication: MULTIPLE SCLEROSIS
     Dosage: UNK, QOD (ALTERNATE-DAY ADMINISTRATION)
     Route: 048
  2. IMUSERA [Suspect]
     Active Substance: FINGOLIMOD HYDROCHLORIDE
     Dosage: UNK, QW5
     Route: 048

REACTIONS (9)
  - Liver disorder [Unknown]
  - Multiple sclerosis relapse [Recovering/Resolving]
  - Cerebral atrophy [Unknown]
  - Gamma-glutamyltransferase increased [Recovered/Resolved]
  - Prescribed underdose [Unknown]
  - Transaminases increased [Unknown]
  - Cerebellar atrophy [Unknown]
  - Drug ineffective [Unknown]
  - Cerebral arteriosclerosis [Unknown]
